FAERS Safety Report 10749613 (Version 1)
Quarter: 2015Q1

REPORT INFORMATION
  Report Type: Spontaneous
  Country: BR (occurrence: BR)
  Receive Date: 20150129
  Receipt Date: 20150129
  Transmission Date: 20150721
  Serious: Yes (Hospitalization)
  Sender: FDA-Public Use
  Company Number: BR-PFIZER INC-2015034080

PATIENT
  Age: 85 Year
  Sex: Male

DRUGS (1)
  1. XALATAN [Suspect]
     Active Substance: LATANOPROST
     Indication: GLAUCOMA
     Dosage: 1.5 ?G, 1 DROP IN THE RIGHT EYE, DAILY
     Route: 047
     Dates: end: 201412

REACTIONS (1)
  - Eye disorder [Unknown]
